FAERS Safety Report 11620753 (Version 7)
Quarter: 2020Q3

REPORT INFORMATION
  Report Type: Spontaneous
  Country: US (occurrence: US)
  Receive Date: 20151012
  Receipt Date: 20200812
  Transmission Date: 20201102
  Serious: Yes (Other)
  Sender: FDA-Public Use
  Company Number: US-PFIZER INC-2015341235

PATIENT
  Age: 43 Year
  Sex: Female
  Weight: 74 kg

DRUGS (5)
  1. FOLIC ACID. [Concomitant]
     Active Substance: FOLIC ACID
     Dosage: 1 MG, 2X/DAY
     Route: 048
  2. DILANTIN [Suspect]
     Active Substance: PHENYTOIN
     Indication: SEIZURE
     Dosage: 100 MG, 3 CAPSULES AT NIGHT/(100MG AT NIGHT 3 OF THEM)
     Route: 048
     Dates: start: 1998
  3. LYRICA [Suspect]
     Active Substance: PREGABALIN
     Dosage: 525 MG, DAILY (75MG CAPSULES, 3 IN THE MORNING AND 4 AT BEDTIME)
     Route: 048
  4. LYRICA [Suspect]
     Active Substance: PREGABALIN
     Indication: SEIZURE
     Dosage: 75 MG, 4X/DAY
     Route: 048
     Dates: start: 2012
  5. DILANTIN [Suspect]
     Active Substance: PHENYTOIN
     Dosage: 330 MG, DAILY (100MG THREE CAPSULES A DAY AND 30MG ONCE CAPSULE AT NIGHT)
     Route: 048

REACTIONS (8)
  - Memory impairment [Not Recovered/Not Resolved]
  - Brain injury [Unknown]
  - Drug ineffective [Not Recovered/Not Resolved]
  - Confusional state [Not Recovered/Not Resolved]
  - Weight increased [Not Recovered/Not Resolved]
  - Cognitive disorder [Not Recovered/Not Resolved]
  - Insomnia [Not Recovered/Not Resolved]
  - Depression [Not Recovered/Not Resolved]
